FAERS Safety Report 8354951-6 (Version None)
Quarter: 2012Q2

REPORT INFORMATION
  Report Type: 
  Country: None (occurrence: None)
  Receive Date: 20120511
  Receipt Date: 20110316
  Transmission Date: 20120825
  Serious: No
  Sender: FDA-Public Use
  Company Number: US-TEVA-2011001255

PATIENT
  Sex: Male

DRUGS (3)
  1. NUVIGIL [Suspect]
     Route: 048
     Dates: start: 20110301
  2. OPANA [Concomitant]
  3. NUCYNTA [Concomitant]

REACTIONS (1)
  - DRUG INEFFECTIVE [None]
